FAERS Safety Report 5679136-3 (Version None)
Quarter: 2008Q1

REPORT INFORMATION
  Report Type: 
  Country: None (occurrence: None)
  Receive Date: 20080325
  Receipt Date: 20080318
  Transmission Date: 20080703
  Serious: Yes (Other)
  Sender: FDA-Public Use
  Company Number: US-MERCK-0803USA03110

PATIENT
  Age: 50 Year
  Sex: Female

DRUGS (16)
  1. JANUVIA [Suspect]
     Indication: TYPE 2 DIABETES MELLITUS
     Route: 048
     Dates: start: 20071101
  2. JANUVIA [Suspect]
     Route: 048
     Dates: end: 20080201
  3. PROGRAF [Concomitant]
     Indication: IMMUNOSUPPRESSANT DRUG THERAPY
     Route: 065
  4. CELLCEPT [Concomitant]
     Route: 065
  5. AMLODIPINE BESYLATE [Concomitant]
     Route: 065
  6. DIOVAN [Concomitant]
     Route: 065
  7. FUROSEMIDE [Concomitant]
     Route: 065
  8. ZEMPLAR [Concomitant]
     Route: 065
  9. [THERAPY UNSPECIFIED] [Concomitant]
     Route: 065
  10. PREVACID [Concomitant]
     Route: 065
  11. METHYLPHENIDATE [Concomitant]
     Route: 065
  12. FOSAMAX [Concomitant]
     Route: 065
  13. AYGESTIN [Concomitant]
     Route: 065
  14. ALPRAZOLAM [Concomitant]
     Route: 065
  15. [THERAPY UNSPECIFIED] [Concomitant]
     Indication: PRURITUS
     Route: 065
  16. COREG [Concomitant]
     Route: 065

REACTIONS (4)
  - HYPERSENSITIVITY [None]
  - PROTEINURIA [None]
  - RASH [None]
  - TRANSPLANT REJECTION [None]
